FAERS Safety Report 7592116-6 (Version None)
Quarter: 2011Q3

REPORT INFORMATION
  Report Type: 
  Country: None (occurrence: None)
  Receive Date: 20110706
  Receipt Date: 20091122
  Transmission Date: 20111222
  Serious: Yes (Other)
  Sender: FDA-Public Use
  Company Number: US-BAYER-200940620NA

PATIENT
  Age: 65 Year
  Sex: Female
  Weight: 123 kg

DRUGS (11)
  1. FUROSEMIDE [Concomitant]
     Dosage: 20 MG
     Route: 048
  2. HYDROCHLOROTHIAZIDE [Concomitant]
     Dosage: 50 MG
     Route: 048
     Dates: start: 20030810
  3. TRASYLOL [Suspect]
     Indication: PRODUCT USED FOR UNKNOWN INDICATION
     Route: 042
     Dates: start: 20070215
  4. POTASSIUM CHLORIDE [Concomitant]
     Dosage: UNK
     Route: 048
     Dates: start: 20061109
  5. MOBIC [Concomitant]
     Dosage: 15MG
     Route: 048
  6. METRONIDAZOLE [Concomitant]
     Dosage: 500 MG
  7. CEPHALEXIN [Concomitant]
     Dosage: 500 MG
     Route: 048
  8. RED BLOOD CELLS [Concomitant]
     Dosage: 4 U, ONCE
     Route: 042
     Dates: start: 20070215
  9. SULFOTRIM [SULFAMETHOXAZOLE,TRIMETHOPRIM] [Concomitant]
     Dosage: 800/160
     Route: 048
     Dates: start: 20061109
  10. PLASMA [Concomitant]
     Dosage: 2 U, ONCE
     Route: 042
     Dates: start: 20070215
  11. HYDROCODONE BITARTRATE [Concomitant]
     Dosage: 7.5MG/750
     Route: 048
     Dates: start: 20060612

REACTIONS (12)
  - RENAL IMPAIRMENT [None]
  - INJURY [None]
  - ANHEDONIA [None]
  - RENAL FAILURE [None]
  - ANXIETY [None]
  - STRESS [None]
  - FEAR [None]
  - PSYCHIATRIC SYMPTOM [None]
  - RENAL INJURY [None]
  - UNEVALUABLE EVENT [None]
  - PAIN [None]
  - EMOTIONAL DISTRESS [None]
